FAERS Safety Report 12823539 (Version 1)
Quarter: 2016Q4

REPORT INFORMATION
  Report Type: Spontaneous
  Country: ES (occurrence: ES)
  Receive Date: 20161007
  Receipt Date: 20161007
  Transmission Date: 20170207
  Serious: Yes (Other)
  Sender: FDA-Public Use
  Company Number: ES-HORIZON-VIM-0214-2016

PATIENT
  Age: 61 Year
  Sex: Female

DRUGS (1)
  1. VIMOVO [Suspect]
     Active Substance: ESOMEPRAZOLE MAGNESIUM\NAPROXEN
     Indication: CONTUSION
     Dosage: 500/20 MG; 1 TABLET TWO TIMES A DAY
     Route: 048
     Dates: start: 20160817

REACTIONS (6)
  - Tongue oedema [Recovering/Resolving]
  - Syncope [Recovering/Resolving]
  - Pruritus [Unknown]
  - Dysarthria [Unknown]
  - Lip oedema [Recovering/Resolving]
  - Craniocerebral injury [Unknown]

NARRATIVE: CASE EVENT DATE: 20160818
